FAERS Safety Report 20909611 (Version 1)
Quarter: 2022Q2

REPORT INFORMATION
  Report Type: Report from Study
  Country: HU (occurrence: HU)
  Receive Date: 20220603
  Receipt Date: 20220603
  Transmission Date: 20220720
  Serious: Yes (Life-Threatening, Other)
  Sender: FDA-Public Use
  Company Number: HU-SUN PHARMACEUTICAL INDUSTRIES LTD-2022R1-339263

PATIENT
  Weight: 8.2 kg

DRUGS (2)
  1. PROPAFENONE [Suspect]
     Active Substance: PROPAFENONE
     Indication: Junctional ectopic tachycardia
     Dosage: 2 MILLIGRAM/KILOGRAM OVER 2 H (LOADING DOSE)
     Route: 065
  2. PROPAFENONE [Suspect]
     Active Substance: PROPAFENONE
     Indication: Junctional ectopic tachycardia
     Dosage: UNK, 8 UG/KG/MIN (MAINTAINANCE DOSE), (CUMULATIVE DOSE: 24 MG/KG OVER 48H)
     Route: 065

REACTIONS (4)
  - Hypotension [Unknown]
  - Cardiac failure [Unknown]
  - Electrocardiogram QRS complex prolonged [Unknown]
  - Multiple organ dysfunction syndrome [Unknown]
